FAERS Safety Report 4404542-4 (Version None)
Quarter: 2004Q3

REPORT INFORMATION
  Report Type: 
  Country: None (occurrence: None)
  Receive Date: 20040720
  Receipt Date: 20040707
  Transmission Date: 20050211
  Serious: Yes (Other)
  Sender: FDA-Public Use
  Company Number: 2004046137

PATIENT
  Age: 63 Year
  Sex: Female

DRUGS (1)
  1. PHENYTOIN SODIUM [Suspect]
     Indication: INJURY
     Dosage: ORAL
     Route: 048
     Dates: start: 20040104

REACTIONS (1)
  - CONVULSION [None]
